FAERS Safety Report 16458403 (Version 2)
Quarter: 2019Q3

REPORT INFORMATION
  Report Type: Spontaneous
  Country: US (occurrence: US)
  Receive Date: 20190620
  Receipt Date: 20190925
  Transmission Date: 20191004
  Serious: No
  Sender: FDA-Public Use
  Company Number: US-THERAPEUTICSMD-2019TMD00726

PATIENT
  Sex: Female
  Weight: 67.12 kg

DRUGS (9)
  1. FLECAINIDE [Concomitant]
     Active Substance: FLECAINIDE
  2. IMVEXXY [Suspect]
     Active Substance: ESTRADIOL
     Indication: VULVOVAGINAL DRYNESS
     Dosage: 4 ?G, 1X/DAY BEFORE BED
     Route: 067
     Dates: start: 2019, end: 2019
  3. MULTIVITAMIN [Concomitant]
     Active Substance: VITAMINS
  4. ?ASERFEX^ [Concomitant]
  5. BYSTOLIC [Concomitant]
     Active Substance: NEBIVOLOL HYDROCHLORIDE
  6. IMVEXXY [Suspect]
     Active Substance: ESTRADIOL
     Dosage: 4 ?G, 2X/WEEK BEFORE BED
     Route: 067
     Dates: start: 2019
  7. PROBIOTIC [Concomitant]
     Active Substance: PROBIOTICS NOS
  8. MAG GLYCINATE [Concomitant]
     Dosage: UNK, 1X/DAY AT NIGHT
  9. RITUXAN [Concomitant]
     Active Substance: RITUXIMAB
     Dosage: UNK, 4X/YEAR (EVERY 3 MONTHS)

REACTIONS (4)
  - Middle insomnia [Not Recovered/Not Resolved]
  - Off label use [Not Recovered/Not Resolved]
  - Vaginal odour [Not Recovered/Not Resolved]
  - Vulvovaginal pruritus [Not Recovered/Not Resolved]

NARRATIVE: CASE EVENT DATE: 2019
